FAERS Safety Report 16262449 (Version 1)
Quarter: 2019Q2

REPORT INFORMATION
  Report Type: Spontaneous
  Country: US (occurrence: US)
  Receive Date: 20190501
  Receipt Date: 20190501
  Transmission Date: 20190711
  Serious: Yes (Other)
  Sender: FDA-Public Use
  Company Number: US-BAXTER-2019BAX008493

PATIENT
  Age: 69 Year
  Sex: Male

DRUGS (2)
  1. MILRINONE LACTATE IN 5% DEXTROSE INJECTION [Suspect]
     Active Substance: MILRINONE LACTATE
     Indication: CHRONIC LEFT VENTRICULAR FAILURE
     Route: 041
  2. MILRINONE LACTATE IN 5% DEXTROSE INJECTION [Suspect]
     Active Substance: MILRINONE LACTATE
     Indication: ISCHAEMIC CARDIOMYOPATHY

REACTIONS (2)
  - Eosinophilic cystitis [Recovered/Resolved]
  - Eosinophilia [Recovered/Resolved]
